FAERS Safety Report 25892201 (Version 3)
Quarter: 2025Q4

REPORT INFORMATION
  Report Type: Spontaneous
  Country: EU (occurrence: EU)
  Receive Date: 20251007
  Receipt Date: 20251030
  Transmission Date: 20260119
  Serious: Yes (Hospitalization, Other)
  Sender: NOVARTIS
  Company Number: EU-002147023-NVSC2025BG151697

PATIENT
  Age: 76 Year
  Sex: Male

DRUGS (3)
  1. CARBAMAZEPINE [Suspect]
     Active Substance: CARBAMAZEPINE
     Indication: Alcohol withdrawal syndrome
     Dosage: UNK
     Route: 065
  2. CARBAMAZEPINE [Suspect]
     Active Substance: CARBAMAZEPINE
     Indication: Polyneuropathy
  3. CARBAMAZEPINE [Suspect]
     Active Substance: CARBAMAZEPINE
     Indication: Sleep disorder

REACTIONS (29)
  - Generalised bullous fixed drug eruption [Recovered/Resolved]
  - Dermatitis bullous [Recovered/Resolved]
  - Skin lesion [Recovered/Resolved]
  - Oral mucosa erosion [Recovered/Resolved]
  - Oral pain [Recovered/Resolved]
  - Fatigue [Recovered/Resolved]
  - Muscular weakness [Recovered/Resolved]
  - Asthenia [Recovered/Resolved]
  - Thrombocytopenia [Recovered/Resolved]
  - Liver injury [Recovered/Resolved]
  - Myelosuppression [Recovered/Resolved]
  - Blood immunoglobulin E increased [Recovered/Resolved]
  - Interleukin level increased [Recovered/Resolved]
  - Fibrinolysis [Recovered/Resolved]
  - Muscle injury [Recovered/Resolved]
  - Blood creatine phosphokinase increased [Recovered/Resolved]
  - Blood creatine phosphokinase increased [Recovered/Resolved]
  - Gamma-glutamyltransferase increased [Recovered/Resolved]
  - Aspartate aminotransferase increased [Recovered/Resolved]
  - Inflammation [Recovered/Resolved]
  - Lymphopenia [Recovered/Resolved]
  - Neutrophilia [Recovered/Resolved]
  - Haematocrit decreased [Recovered/Resolved]
  - Anaemia [Recovered/Resolved]
  - Red blood cell count decreased [Recovered/Resolved]
  - Leukocytosis [Recovered/Resolved]
  - Lymphopenia [Recovered/Resolved]
  - Monocytopenia [Recovered/Resolved]
  - C-reactive protein increased [Recovered/Resolved]
